FAERS Safety Report 12640707 (Version 3)
Quarter: 2017Q1

REPORT INFORMATION
  Report Type: Report from Study
  Country: AU (occurrence: AU)
  Receive Date: 20160810
  Receipt Date: 20170214
  Transmission Date: 20170428
  Serious: Yes (Hospitalization, Other)
  Sender: FDA-Public Use
  Company Number: AU-AMGEN-AUSSL2016101357

PATIENT
  Age: 50 Year
  Sex: Female
  Weight: 107.7 kg

DRUGS (32)
  1. ENDEP [Concomitant]
     Active Substance: AMITRIPTYLINE HYDROCHLORIDE
     Dosage: 50 MG, UNK
  2. PROPRANOLOL [Concomitant]
     Active Substance: PROPRANOLOL HYDROCHLORIDE
     Dosage: 10 MG, 1 TDS
  3. MELATONIN [Concomitant]
     Active Substance: MELATONIN
     Dosage: 3 MG, AS NECESSARY
  4. HUMALOG [Concomitant]
     Active Substance: INSULIN LISPRO
     Dosage: 80 UNITS AT LUNCH
  5. DAPSONE. [Concomitant]
     Active Substance: DAPSONE
     Dosage: 25 MG, UNK
  6. EUTROXSIG [Concomitant]
     Active Substance: LEVOTHYROXINE SODIUM
     Dosage: 50 MUG, UNK
  7. SPIRACTIN [Concomitant]
     Active Substance: SPIRONOLACTONE
     Dosage: 25 MG, UNK
  8. AZITHROMYCIN ANHYDROUS. [Concomitant]
     Active Substance: AZITHROMYCIN ANHYDROUS
     Dosage: 500 MG, 1 D
  9. HIPREX [Concomitant]
     Active Substance: METHENAMINE HIPPURATE
     Dosage: 1000 MG, UNK
  10. CRESTOR [Concomitant]
     Active Substance: ROSUVASTATIN CALCIUM
     Dosage: 10 MG, 1 N
  11. MAGMIN [Concomitant]
     Active Substance: MAGNESIUM ASPARTATE
     Dosage: 500 MG, UNK
  12. CLEXANE [Concomitant]
     Active Substance: ENOXAPARIN SODIUM
     Dosage: 120 MG, UNK
  13. NOVORAPID [Concomitant]
     Active Substance: INSULIN ASPART
     Dosage: AFTER ANY MEAL IF BSL}10 4
  14. AUSGEM [Concomitant]
     Dosage: 600 MG, BID
  15. URSOFALK [Concomitant]
     Active Substance: URSODIOL
     Dosage: 250 MG, UNK
  16. FRUSEMIDE [Concomitant]
     Active Substance: FUROSEMIDE
     Dosage: 40 MG, UNK
  17. ZOMIG [Concomitant]
     Active Substance: ZOLMITRIPTAN
     Dosage: 2.5 MG, AS NECESSARY
  18. CREON [Concomitant]
     Active Substance: PANCRELIPASE AMYLASE\PANCRELIPASE LIPASE\PANCRELIPASE PROTEASE
     Dosage: 25000 IU, 1 TDS
  19. DIABEX [Concomitant]
     Active Substance: METFORMIN HYDROCHLORIDE
     Dosage: 1000 MG, BID
  20. MYCOPHENOLATE ACCORD [Concomitant]
     Active Substance: MYCOPHENOLIC ACID
     Dosage: 500 MG, BID
  21. ALLOPURINOL. [Concomitant]
     Active Substance: ALLOPURINOL
     Dosage: 100 MG, (450MG DAILY)
  22. ADEMPAS [Concomitant]
     Active Substance: RIOCIGUAT
     Dosage: 2 MG, 1 TDS
  23. OXYCODONE [Concomitant]
     Active Substance: OXYCODONE
     Dosage: 5 MG, 2 QID AS NECESSARY
  24. VITAMIN D [Concomitant]
     Active Substance: CHOLECALCIFEROL
     Dosage: 50000 IU, QMO
  25. PREDNISONE. [Concomitant]
     Active Substance: PREDNISONE
     Dosage: 5 MG, UNK
  26. REFRESH TEARS PLUS [Concomitant]
     Dosage: 0.5 %, AS NECESSARY
  27. REPATHA [Suspect]
     Active Substance: EVOLOCUMAB
     Indication: TYPE IIA HYPERLIPIDAEMIA
     Dosage: 140 MG, FORTNIGHTLY
     Route: 058
     Dates: start: 20160408
  28. RABEPRAZOLE [Concomitant]
     Active Substance: RABEPRAZOLE
     Dosage: 20 MG, BID
  29. NOVOMIX [Concomitant]
     Active Substance: INSULIN ASPART
     Dosage: 30 DF (FLEXPEN), UNK
  30. JARDIANCE [Concomitant]
     Active Substance: EMPAGLIFLOZIN
     Dosage: 25 MG, UNK
  31. HYDROXO B12 [Concomitant]
     Dosage: UNK UNK, Q3MO
  32. OVESTIN [Concomitant]
     Active Substance: ESTRIOL
     Dosage: 1 MG/ML, UNK

REACTIONS (8)
  - Lung disorder [Recovering/Resolving]
  - Abdominal adhesions [Recovering/Resolving]
  - Cardiac disorder [Recovering/Resolving]
  - Small intestinal obstruction [Recovered/Resolved]
  - Sepsis [Recovering/Resolving]
  - Staphylococcal infection [Recovering/Resolving]
  - Fatigue [Unknown]
  - Inappropriate schedule of drug administration [Unknown]

NARRATIVE: CASE EVENT DATE: 20160720
